APPROVED DRUG PRODUCT: CHLORDIAZEPOXIDE HYDROCHLORIDE AND CLIDINIUM BROMIDE
Active Ingredient: CHLORDIAZEPOXIDE HYDROCHLORIDE; CLIDINIUM BROMIDE
Strength: 5MG;2.5MG
Dosage Form/Route: CAPSULE;ORAL
Application: A211476 | Product #001
Applicant: TEVA PHARMACEUTICALS USA INC
Approved: Nov 2, 2021 | RLD: No | RS: No | Type: DISCN